FAERS Safety Report 6969652-6 (Version None)
Quarter: 2010Q3

REPORT INFORMATION
  Report Type: 
  Country: None (occurrence: None)
  Receive Date: 20100908
  Receipt Date: 20100902
  Transmission Date: 20110219
  Serious: Yes (Hospitalization)
  Sender: FDA-Public Use
  Company Number: US-ASTRAZENECA-2007UW18765

PATIENT
  Age: 636 Month
  Sex: Female
  Weight: 73.9 kg

DRUGS (24)
  1. SEROQUEL [Suspect]
     Indication: SLEEP DISORDER
     Route: 048
     Dates: start: 20020101, end: 20060101
  2. SEROQUEL [Suspect]
     Indication: NERVE INJURY
     Route: 048
     Dates: start: 20020101, end: 20060101
  3. SEROQUEL [Suspect]
     Route: 048
     Dates: start: 20050725, end: 20060225
  4. SEROQUEL [Suspect]
     Route: 048
     Dates: start: 20050725, end: 20060225
  5. RISPERDAL [Concomitant]
  6. ZYPREXA [Concomitant]
  7. NITROGLYCERIN [Concomitant]
     Route: 065
  8. ACETAMINOPHEN [Concomitant]
     Route: 065
  9. METFORMIN [Concomitant]
     Route: 065
  10. LISINOPRIL [Concomitant]
     Dosage: 5-20MG
     Route: 065
  11. SPIRONOLACTONE [Concomitant]
     Route: 065
  12. METOPROLOL TARTRATE [Concomitant]
     Route: 065
  13. HEPARIN [Concomitant]
     Route: 065
  14. RANITIDINE [Concomitant]
     Route: 065
  15. PROMETHAZINE [Concomitant]
     Route: 065
  16. KETOROLAC [Concomitant]
     Route: 065
  17. HYDROMORPHONE HCL [Concomitant]
     Route: 065
  18. VICODIN [Concomitant]
     Route: 065
  19. METOCLOPRAMIDE [Concomitant]
     Route: 065
  20. ALLOPURINOL [Concomitant]
     Route: 065
  21. MAXZIDE-25 [Concomitant]
     Route: 065
  22. GLIMEPIRIDE [Concomitant]
     Route: 065
  23. TOPIRAMATE [Concomitant]
     Route: 065
  24. TRAZODONE HCL [Concomitant]
     Dosage: 50 MG TO 150 MG
     Dates: start: 20040129, end: 20060522

REACTIONS (2)
  - MENINGITIS [None]
  - TYPE 2 DIABETES MELLITUS [None]
